FAERS Safety Report 23932650 (Version 1)
Quarter: 2024Q2

REPORT INFORMATION
  Report Type: Spontaneous
  Country: US (occurrence: US)
  Receive Date: 20240603
  Receipt Date: 20240603
  Transmission Date: 20240716
  Serious: No
  Sender: FDA-Public Use
  Company Number: US-TEVA-VS-3201010

PATIENT
  Sex: Female

DRUGS (12)
  1. PENICILLIN [Suspect]
     Active Substance: PENICILLIN
     Indication: Product used for unknown indication
     Route: 065
  2. VITAMIN B12 [Concomitant]
     Active Substance: CYANOCOBALAMIN
  3. PEPCID [Concomitant]
     Active Substance: FAMOTIDINE
  4. NURTEC ODT [Concomitant]
     Active Substance: RIMEGEPANT SULFATE
  5. ZOFRAN [Concomitant]
     Active Substance: ONDANSETRON HYDROCHLORIDE
  6. METHOCARBAMOL [Concomitant]
     Active Substance: METHOCARBAMOL
  7. EFFEXOR [Concomitant]
     Active Substance: VENLAFAXINE HYDROCHLORIDE
  8. SEROQUEL [Concomitant]
     Active Substance: QUETIAPINE FUMARATE
  9. FISH OIL [Concomitant]
     Active Substance: FISH OIL
  10. COLACE [Concomitant]
     Active Substance: DOCUSATE SODIUM
  11. MELATONIN [Concomitant]
     Active Substance: MELATONIN
  12. AMOXICILLIN [Suspect]
     Active Substance: AMOXICILLIN

REACTIONS (2)
  - Rash [Unknown]
  - Hypersensitivity [Unknown]
